FAERS Safety Report 8847886 (Version 1)
Quarter: 2012Q4

REPORT INFORMATION
  Report Type: 
  Country: US (occurrence: US)
  Receive Date: 20121018
  Receipt Date: 20121018
  Transmission Date: 20130627
  Serious: Yes (Life-Threatening, Other)
  Sender: FDA-Public Use
  Company Number: US-ROCHE-GNE095664

PATIENT
  Age: 7 Year
  Sex: Female

DRUGS (5)
  1. NUTROPIN AQ [Suspect]
     Indication: PRODUCT USED FOR UNKNOWN INDICATION
     Route: 058
     Dates: start: 19990519, end: 19991110
  2. NUTROPIN [Suspect]
     Indication: HYPOPITUITARISM
     Route: 065
  3. DDAVP [Concomitant]
     Route: 045
  4. CORTEF [Concomitant]
     Route: 065
  5. SYNTHROID [Concomitant]
     Route: 065

REACTIONS (2)
  - Astrocytoma [Not Recovered/Not Resolved]
  - Drug administration error [Unknown]
